FAERS Safety Report 6543464-X (Version None)
Quarter: 2010Q1

REPORT INFORMATION
  Report Type: 
  Country: None (occurrence: None)
  Receive Date: 20100120
  Receipt Date: 20100114
  Transmission Date: 20100710
  Serious: Yes (Hospitalization)
  Sender: FDA-Public Use
  Company Number: A0840129A

PATIENT
  Sex: Female
  Weight: 14 kg

DRUGS (3)
  1. SERETIDE [Suspect]
     Indication: ASTHMA
     Dosage: 1PUFF TWICE PER DAY
     Route: 055
     Dates: start: 20091208, end: 20091220
  2. PREDNISOLONE [Concomitant]
     Dates: start: 20080101
  3. ACEBROPHYLLINE [Concomitant]
     Dosage: 2.5ML THREE TIMES PER DAY
     Dates: start: 20080101

REACTIONS (3)
  - DYSPNOEA [None]
  - FATIGUE [None]
  - PYREXIA [None]
